FAERS Safety Report 15387548 (Version 2)
Quarter: 2019Q3

REPORT INFORMATION
  Report Type: Spontaneous
  Country: US (occurrence: US)
  Receive Date: 20180914
  Receipt Date: 20190904
  Transmission Date: 20191004
  Serious: No
  Sender: FDA-Public Use
  Company Number: US-PURDUE-USA-2018-0144357

PATIENT
  Sex: Female

DRUGS (2)
  1. OXYCODONE/ ACETAMINOPHEN TABLETS [Suspect]
     Active Substance: ACETAMINOPHEN\OXYCODONE HYDROCHLORIDE
     Indication: PRODUCT USED FOR UNKNOWN INDICATION
     Dosage: UNK
     Route: 048
  2. OXYCODONE/ ACETAMINOPHEN TABLETS [Suspect]
     Active Substance: ACETAMINOPHEN\OXYCODONE HYDROCHLORIDE
     Dosage: 10/325 MG, QID
     Route: 048

REACTIONS (6)
  - Nausea [Unknown]
  - Therapeutic product effect incomplete [Unknown]
  - Dizziness [Unknown]
  - Drug ineffective [Recovering/Resolving]
  - Product quality issue [Unknown]
  - Drug withdrawal syndrome [Unknown]
